FAERS Safety Report 9199788 (Version 1)
Quarter: 2013Q1

REPORT INFORMATION
  Report Type: Report from Study
  Country: TR (occurrence: TR)
  Receive Date: 20130329
  Receipt Date: 20130329
  Transmission Date: 20140127
  Serious: Yes (Other)
  Sender: FDA-Public Use
  Company Number: TR-ASTELLAS-2013EU003064

PATIENT
  Age: 12 Year
  Sex: Female

DRUGS (1)
  1. TACROLIMUS SYSTEMIC [Suspect]
     Indication: LIVER TRANSPLANT
     Dosage: UNK
     Route: 065

REACTIONS (1)
  - Hyperinsulinaemia [Unknown]
